FAERS Safety Report 4299971-6 (Version None)
Quarter: 2004Q1

REPORT INFORMATION
  Report Type: 
  Country: None (occurrence: None)
  Receive Date: 20040218
  Receipt Date: 20040211
  Transmission Date: 20041129
  Serious: Yes (Death)
  Sender: FDA-Public Use
  Company Number: A044-002-004849

PATIENT
  Age: 77 Year
  Sex: Female

DRUGS (2)
  1. ARICEPT [Suspect]
     Dosage: ORAL
     Route: 048
  2. ^NUMEROUS UNSPECIFIED DRUGS^ [Concomitant]

REACTIONS (1)
  - RESPIRATORY FAILURE [None]
